FAERS Safety Report 5483560-1 (Version None)
Quarter: 2007Q4

REPORT INFORMATION
  Report Type: 
  Country: None (occurrence: None)
  Receive Date: 20071012
  Receipt Date: 20071004
  Transmission Date: 20080405
  Serious: Yes (Other)
  Sender: FDA-Public Use
  Company Number: PHBS2007NO14706

PATIENT
  Age: 12 Year
  Sex: Female

DRUGS (1)
  1. EXJADE [Suspect]
     Indication: CONGENITAL APLASTIC ANAEMIA
     Dosage: 500 MG, QD
     Dates: start: 20061001

REACTIONS (2)
  - HEART RATE DECREASED [None]
  - SINUS BRADYCARDIA [None]
